FAERS Safety Report 9432164 (Version 1)
Quarter: 2013Q3

REPORT INFORMATION
  Report Type: Spontaneous
  Country: US (occurrence: US)
  Receive Date: 20130731
  Receipt Date: 20130731
  Transmission Date: 20140515
  Serious: No
  Sender: FDA-Public Use
  Company Number: US-PFIZER INC-2013206598

PATIENT
  Age: 47 Year
  Sex: Female

DRUGS (18)
  1. LYRICA [Suspect]
     Dosage: 150 MG, 1X/DAY
     Route: 048
  2. SKELAXIN [Concomitant]
     Dosage: 800 MG 3X/DAILY, AS NEEDED
  3. ANUCORT-HC [Concomitant]
     Indication: HAEMORRHAGE
     Dosage: 25 MG, 2X/DAY (BID PRF)
     Route: 054
     Dates: start: 20120917
  4. DHEA [Concomitant]
     Dosage: 25 MG, 1X/DAY
     Route: 048
  5. DICYCLOMINE HYDROCHLORIDE [Concomitant]
     Indication: ABDOMINAL PAIN
     Dosage: 20 MG, 4X/DAY
     Route: 048
     Dates: start: 20120917
  6. FISH OIL [Concomitant]
     Dosage: 1 DF, 1X/DAY
  7. NAPROXEN [Concomitant]
     Dosage: 500 MG, 2X/DAY
     Route: 048
  8. PROAIR HFA [Concomitant]
     Indication: BRONCHITIS
     Dosage: UNK, AS NEEDED ( INHALE 1 TO 2 PUFFS EVERY 4 TO 6 HOURS)
     Route: 055
     Dates: start: 20130514
  9. METAXALONE [Concomitant]
     Indication: PAIN
     Dosage: 800 MG, 3 TIMES DAILY AS NEEDED
     Route: 048
     Dates: start: 20130328
  10. METAXALONE [Concomitant]
     Indication: MUSCLE SPASMS
  11. HYDROCODONE-ACETAMINOPHEN [Concomitant]
     Indication: PAIN
     Dosage: HYDROCODONE BITARTRATE 7.5MG / PARACETAMOL 500 MG, 4 TIMES DAILY AS NEEDED
     Route: 048
     Dates: start: 20130624
  12. HYDROCODONE-ACETAMINOPHEN [Concomitant]
     Indication: PAIN
  13. HYDROCODONE-ACETAMINOPHEN [Concomitant]
     Indication: COLITIS
  14. HYDROCODONE-ACETAMINOPHEN [Concomitant]
     Indication: BACK PAIN
  15. HYDROCODONE-ACETAMINOPHEN [Concomitant]
     Indication: BACK PAIN
  16. CYMBALTA [Concomitant]
     Indication: DEPRESSION
     Dosage: 60 MG, 1X/DAY
     Route: 048
     Dates: start: 20130328
  17. AMLODIPINE BESY-BENAZEPRIL [Concomitant]
     Indication: HYPERTENSION
     Dosage: AMLODIPINE BESILATE10MG / BENAZEPRIL HYDROCHLORIDE 20MG, 1X/DAY
     Route: 048
  18. TRAZODONE HCI [Concomitant]
     Indication: POST-TRAUMATIC STRESS DISORDER
     Dosage: TAKE 1-2 TABLETS AT BEDTIME, AS NEEDED
     Route: 048

REACTIONS (1)
  - Vision blurred [Unknown]
